FAERS Safety Report 5121791-0 (Version None)
Quarter: 2006Q4

REPORT INFORMATION
  Report Type: 
  Country: None (occurrence: None)
  Receive Date: 20061006
  Receipt Date: 20060926
  Transmission Date: 20070319
  Serious: Yes (Other)
  Sender: FDA-Public Use
  Company Number: US-ROCHE-465108

PATIENT
  Sex: Female

DRUGS (1)
  1. TORADOL [Suspect]
     Indication: DRUG USE FOR UNKNOWN INDICATION
     Route: 065
     Dates: start: 20010615

REACTIONS (4)
  - MENTAL DISORDER [None]
  - PARANOIA [None]
  - SKIN DISORDER [None]
  - SPEECH DISORDER [None]
